FAERS Safety Report 13261712 (Version 2)
Quarter: 2017Q1

REPORT INFORMATION
  Report Type: Spontaneous
  Country: FR (occurrence: FR)
  Receive Date: 20170222
  Receipt Date: 20170321
  Transmission Date: 20170428
  Serious: Yes (Life-Threatening)
  Sender: FDA-Public Use
  Company Number: PHHY2017FR003925

PATIENT
  Age: 15 Year
  Sex: Female

DRUGS (5)
  1. CIPROFLOXACIN. [Concomitant]
     Active Substance: CIPROFLOXACIN
     Indication: POSTOPERATIVE WOUND INFECTION
     Dosage: UNK
     Route: 065
     Dates: start: 20161212
  2. VANCOMYCIN SANDOZ [Suspect]
     Active Substance: VANCOMYCIN
     Indication: POSTOPERATIVE WOUND INFECTION
     Dosage: UNK
     Route: 042
     Dates: start: 20161203, end: 20161203
  3. GENTAMICINE PANPHARMA [Concomitant]
     Active Substance: GENTAMICIN
     Indication: POSTOPERATIVE WOUND INFECTION
     Dosage: UNK
     Route: 042
     Dates: start: 20161203, end: 20161205
  4. ZYVOXID [Concomitant]
     Active Substance: LINEZOLID
     Indication: POSTOPERATIVE WOUND INFECTION
     Route: 065
  5. PIPERACILIN/TAZOBAKTAM MYLAN [Concomitant]
     Active Substance: PIPERACILLIN SODIUM\TAZOBACTAM SODIUM
     Indication: POSTOPERATIVE WOUND INFECTION
     Dosage: UNK
     Route: 042
     Dates: start: 20161203, end: 20161204

REACTIONS (4)
  - Bradycardia [Recovered/Resolved]
  - Anaphylactic shock [Recovered/Resolved]
  - Hypotension [Recovered/Resolved]
  - Bronchospasm [Recovered/Resolved]

NARRATIVE: CASE EVENT DATE: 20161203
